FAERS Safety Report 4577253-2 (Version None)
Quarter: 2005Q1

REPORT INFORMATION
  Report Type: 
  Country: None (occurrence: None)
  Receive Date: 20050209
  Receipt Date: 20050126
  Transmission Date: 20050727
  Serious: Yes (Death, Hospitalization)
  Sender: FDA-Public Use
  Company Number: 2004AL000699

PATIENT
  Age: 48 Year
  Sex: Female

DRUGS (4)
  1. CHILDREN'S APAP ELIXIR (ACETAMINOPHEN) (ALPHARMA) [Suspect]
     Dosage: PO
     Route: 048
  2. INFANTS' APAP DROPS (ACETAMINOPHEN) (ALPHARMA) [Suspect]
     Dosage: PO
     Route: 048
  3. TRICYCLIC ANTIDEPRESSANTS [Suspect]
     Dosage: PO
     Route: 048
  4. METHADONE [Suspect]
     Dosage: PO
     Route: 048

REACTIONS (9)
  - ALANINE AMINOTRANSFERASE INCREASED [None]
  - ASPARTATE AMINOTRANSFERASE INCREASED [None]
  - CARDIO-RESPIRATORY ARREST [None]
  - COMPLETED SUICIDE [None]
  - DRUG SCREEN POSITIVE [None]
  - ELECTROCARDIOGRAM QRS COMPLEX PROLONGED [None]
  - ELECTROENCEPHALOGRAM ABNORMAL [None]
  - HYPOTENSION [None]
  - INTENTIONAL MISUSE [None]
